FAERS Safety Report 4311000-4 (Version None)
Quarter: 2004Q1

REPORT INFORMATION
  Report Type: 
  Country: None (occurrence: None)
  Receive Date: 20040303
  Receipt Date: 20040226
  Transmission Date: 20041129
  Serious: No
  Sender: FDA-Public Use
  Company Number: 7499

PATIENT
  Age: 70 Year
  Sex: Male

DRUGS (5)
  1. AMIODARONE HCL [Suspect]
     Indication: ARRHYTHMIA
     Dosage: 100 MG
  2. LOSARTAN [Concomitant]
  3. CO-AMILOFRUSE [Concomitant]
  4. ACETYLSALICYLIC ACID [Concomitant]
  5. DICLOFENAC [Concomitant]

REACTIONS (4)
  - CHEILITIS [None]
  - PHOTOSENSITIVITY REACTION [None]
  - PROLONGED EXPIRATION [None]
  - WHEEZING [None]
